FAERS Safety Report 5976133-5 (Version None)
Quarter: 2008Q4

REPORT INFORMATION
  Report Type: 
  Country: None (occurrence: None)
  Receive Date: 20081202
  Receipt Date: 20081128
  Transmission Date: 20090506
  Serious: Yes (Death)
  Sender: FDA-Public Use
  Company Number: JP-ASTRAZENECA-2008AP08895

PATIENT
  Age: 54 Year
  Sex: Female

DRUGS (1)
  1. MEROPENEM [Suspect]
     Route: 041
     Dates: start: 20051101, end: 20051101

REACTIONS (1)
  - TOXIC EPIDERMAL NECROLYSIS [None]
